FAERS Safety Report 21685922 (Version 1)
Quarter: 2022Q4

REPORT INFORMATION
  Report Type: Report from Study
  Country: GB (occurrence: GB)
  Receive Date: 20221206
  Receipt Date: 20221206
  Transmission Date: 20230112
  Serious: No
  Sender: FDA-Public Use
  Company Number: GB-GBT-017891

PATIENT
  Sex: Male

DRUGS (1)
  1. VOXELOTOR [Suspect]
     Active Substance: VOXELOTOR
     Indication: Haemolytic anaemia
     Route: 048

REACTIONS (3)
  - Sickle cell anaemia with crisis [Unknown]
  - Rash maculo-papular [Unknown]
  - Therapy interrupted [Unknown]
